FAERS Safety Report 20755206 (Version 2)
Quarter: 2022Q2

REPORT INFORMATION
  Report Type: Spontaneous
  Country: US (occurrence: US)
  Receive Date: 20220427
  Receipt Date: 20220505
  Transmission Date: 20220720
  Serious: Yes (Hospitalization)
  Sender: FDA-Public Use
  Company Number: US-CELGENE-USA-20220303653

PATIENT
  Age: 91 Year
  Sex: Male
  Weight: 58 kg

DRUGS (2)
  1. REVLIMID [Suspect]
     Active Substance: LENALIDOMIDE
     Indication: Plasma cell myeloma
     Dosage: QD 21 DAYS ON 7DAYS OFF
     Route: 048
     Dates: end: 20220409
  2. REVLIMID [Suspect]
     Active Substance: LENALIDOMIDE
     Dosage: 20 MILLIGRAM,3 WEEKS AND 1 WEEK OFF
     Route: 048
     Dates: start: 202008

REACTIONS (4)
  - Fall [Unknown]
  - Adverse event [Unknown]
  - Hypotension [Recovered/Resolved]
  - Pyrexia [Recovered/Resolved]

NARRATIVE: CASE EVENT DATE: 20220303
